FAERS Safety Report 6171239-2 (Version None)
Quarter: 2009Q2

REPORT INFORMATION
  Report Type: 
  Country: None (occurrence: None)
  Receive Date: 20090429
  Receipt Date: 20090421
  Transmission Date: 20091009
  Serious: Yes (Other)
  Sender: FDA-Public Use
  Company Number: US-JNJFOC-20090405233

PATIENT
  Sex: Female
  Weight: 103.42 kg

DRUGS (4)
  1. REMICADE [Suspect]
     Dosage: DOSE REPORTED AS 4
     Route: 042
  2. REMICADE [Suspect]
     Dosage: DOSE REPORTED AS 4
     Route: 042
  3. REMICADE [Suspect]
     Dosage: DOSE REPORTED AS 4
     Route: 042
  4. REMICADE [Suspect]
     Indication: RHEUMATOID ARTHRITIS
     Dosage: DOSE REPORTED AS 4
     Route: 042

REACTIONS (5)
  - ABNORMAL LOSS OF WEIGHT [None]
  - FUNGAL INFECTION [None]
  - GASTROINTESTINAL FUNGAL INFECTION [None]
  - OROPHARYNGITIS FUNGAL [None]
  - VOMITING [None]
